FAERS Safety Report 20332705 (Version 2)
Quarter: 2022Q1

REPORT INFORMATION
  Report Type: Spontaneous
  Country: US (occurrence: US)
  Receive Date: 20220113
  Receipt Date: 20220322
  Transmission Date: 20220423
  Serious: Yes (Hospitalization, Congenital Anomaly, Other)
  Sender: FDA-Public Use
  Company Number: US-NOVARTISPH-NVSC2022US004025

PATIENT
  Weight: 1.194 kg

DRUGS (10)
  1. CEFTRIAXONE [Suspect]
     Active Substance: CEFTRIAXONE
     Indication: Foetal exposure during pregnancy
     Dosage: MATERNAL DOSE: UNK
     Route: 064
  2. CEFAZOLIN [Suspect]
     Active Substance: CEFAZOLIN
     Indication: Foetal exposure during pregnancy
     Dosage: MATERNAL DOSE: UNK
     Route: 064
  3. AZITHROMYCIN [Suspect]
     Active Substance: AZITHROMYCIN
     Indication: Foetal exposure during pregnancy
     Dosage: MATERNAL DOSE: UNK
     Route: 064
  4. ARGATROBAN [Suspect]
     Active Substance: ARGATROBAN
     Indication: Foetal exposure during pregnancy
     Dosage: MATERNAL DOSE: UNK
     Route: 064
  5. METRONIDAZOLE [Suspect]
     Active Substance: METRONIDAZOLE
     Indication: Foetal exposure during pregnancy
     Dosage: MATERNAL DOSE: UNK
     Route: 064
  6. DEXAMETHASONE [Suspect]
     Active Substance: DEXAMETHASONE
     Indication: Foetal exposure during pregnancy
     Dosage: MATERNAL DOSE: UNK
     Route: 064
  7. HEPARIN [Suspect]
     Active Substance: HEPARIN SODIUM
     Indication: Foetal exposure during pregnancy
     Dosage: MATERNAL DOSE: UNK
     Route: 064
  8. METHYLERGONOVINE [Suspect]
     Active Substance: METHYLERGONOVINE
     Indication: Foetal exposure during pregnancy
     Dosage: MATERNAL DOSE: 200 UG Q4 X 24 H
     Route: 064
  9. OXYTOCIN [Suspect]
     Active Substance: OXYTOCIN
     Indication: Foetal exposure during pregnancy
     Dosage: MATERNAL DOSE: 10 UNITS
     Route: 064
  10. MISOPROSTOL [Suspect]
     Active Substance: MISOPROSTOL
     Indication: Foetal exposure during pregnancy
     Dosage: MATERNAL DOSE: 1000 UG
     Route: 064

REACTIONS (4)
  - Patent ductus arteriosus [Unknown]
  - Sepsis neonatal [Unknown]
  - Premature baby [Unknown]
  - Foetal exposure during pregnancy [Unknown]
